FAERS Safety Report 7559793-7 (Version None)
Quarter: 2011Q2

REPORT INFORMATION
  Report Type: 
  Country: None (occurrence: None)
  Receive Date: 20110621
  Receipt Date: 20110611
  Transmission Date: 20111010
  Serious: Yes (Other)
  Sender: FDA-Public Use
  Company Number: US-ROCHE-782726

PATIENT
  Age: 68 Year
  Sex: Male
  Weight: 92.8 kg

DRUGS (5)
  1. BEVACIZUMAB [Suspect]
     Dosage: COURSE:28; DOSE: OVER 30 TO 90 MINS ON DAY1; TOTAL DOSE:1390 MG; LAST DOSE PRIOR TO SAE: 25APRIL2011
     Route: 042
     Dates: start: 20091019
  2. ZOLEDRONIC ACID [Suspect]
     Route: 065
  3. TAXOTERE [Suspect]
     Dosage: COURSE:28; DOSE: OVER 60 MINS ON DAY1; TOTAL DOSE:89 MG; LAST DOSE PRIOR TO SAE:25 APRIL 2011
     Route: 042
  4. PREDNISONE [Suspect]
     Dosage: COURSE:28; TOTAL DOSE: 210 MG; LAST DOSE PRIOR TO SAE: 16 MAY 2011
     Route: 048
     Dates: start: 20091019
  5. REVLIMID [Suspect]
     Dosage: COURSE:28; TOTAL DOSE:140MG; LAST DOSE PRIOR TO SAE:08 MAY 2011; DOSE REDUCED
     Route: 042

REACTIONS (1)
  - OSTEONECROSIS OF JAW [None]
